FAERS Safety Report 10179287 (Version 1)
Quarter: 2014Q2

REPORT INFORMATION
  Report Type: Spontaneous
  Country: US (occurrence: US)
  Receive Date: 20140519
  Receipt Date: 20140519
  Transmission Date: 20141212
  Serious: No
  Sender: FDA-Public Use
  Company Number: US-009507513-1405USA007432

PATIENT
  Age: 62 Year
  Sex: Male

DRUGS (3)
  1. REBETOL [Suspect]
     Indication: HEPATITIS C
     Dosage: 200 MG, BID
     Route: 048
     Dates: start: 20131121, end: 20140514
  2. VICTRELIS [Suspect]
     Dosage: UNK
     Route: 048
     Dates: end: 20140514
  3. PEGINTRON [Suspect]
     Dosage: UNK
     Dates: end: 20140514

REACTIONS (1)
  - No therapeutic response [Not Recovered/Not Resolved]
